FAERS Safety Report 7468278-8 (Version None)
Quarter: 2011Q2

REPORT INFORMATION
  Report Type: 
  Country: None (occurrence: None)
  Receive Date: 20110509
  Receipt Date: 20110427
  Transmission Date: 20111010
  Serious: Yes (Death, Hospitalization)
  Sender: FDA-Public Use
  Company Number: FR-CELGENEUS-056-C5013-11042029

PATIENT
  Sex: Female
  Weight: 53 kg

DRUGS (24)
  1. LENALIDOMIDE [Suspect]
     Dosage: 10 MILLIGRAM
     Route: 048
     Dates: start: 20110401, end: 20110413
  2. DEXAMETHASONE [Suspect]
     Indication: MULTIPLE MYELOMA
     Dosage: 20 MILLIGRAM
     Route: 065
     Dates: start: 20100819
  3. SORBITOL [Concomitant]
     Dosage: 10 GRAM
     Route: 048
     Dates: start: 20110409, end: 20110413
  4. OSTEPAM [Concomitant]
     Dosage: 60 MILLIGRAM
     Route: 051
     Dates: start: 20110321, end: 20110321
  5. DUPHALAC [Concomitant]
     Indication: CONSTIPATION PROPHYLAXIS
     Route: 048
     Dates: start: 20110407, end: 20110413
  6. LOXEN [Concomitant]
     Route: 048
     Dates: start: 19290101
  7. EPORATIO [Concomitant]
     Indication: ANAEMIA
     Dosage: 2.8571 IU (INTERNATIONAL UNIT)
     Route: 058
     Dates: start: 20110203
  8. ACUPAN [Concomitant]
     Route: 051
     Dates: start: 20110326, end: 20110328
  9. CIPROFLOXACIN [Concomitant]
     Dosage: 1000 MILLIGRAM
     Route: 048
     Dates: start: 20110329, end: 20110407
  10. NEORECORMON [Concomitant]
     Indication: ANAEMIA
     Dosage: 428.5714 IU (INTERNATIONAL UNIT)
     Route: 058
     Dates: start: 20110317
  11. NORMACOL [Concomitant]
     Indication: CONSTIPATION PROPHYLAXIS
     Route: 054
     Dates: start: 20110328, end: 20110329
  12. LENALIDOMIDE [Suspect]
     Indication: MULTIPLE MYELOMA
     Dosage: 10 MILLIGRAM
     Route: 048
     Dates: start: 20100819
  13. DEXAMETHASONE [Suspect]
     Dosage: 20 MILLIGRAM
     Route: 065
     Dates: start: 20110401, end: 20110408
  14. SKENAN [Concomitant]
     Dosage: 10 TO 30 MG TWICE DAILY
     Route: 065
     Dates: start: 20110322
  15. ZELITREX [Concomitant]
     Indication: INFECTION PROPHYLAXIS
     Dosage: 1000 MILLIGRAM
     Route: 048
     Dates: start: 20100819
  16. PYOSTACINE [Concomitant]
     Dosage: 3 GRAM
     Route: 048
     Dates: start: 20110412, end: 20110418
  17. KALEORID [Concomitant]
     Indication: HYPOKALAEMIA
     Route: 048
     Dates: start: 20110404, end: 20110404
  18. ACETAMINOPHEN [Concomitant]
     Dosage: 3000 MILLIGRAM
     Route: 048
     Dates: start: 20110317, end: 20110404
  19. TRANSIPEG [Concomitant]
     Indication: CONSTIPATION PROPHYLAXIS
     Dosage: 11.8 GRAM
     Route: 048
     Dates: start: 20110322, end: 20110407
  20. BUDESONIDE [Concomitant]
     Indication: NASAL POLYPS
     Dosage: 2 MILLIGRAM
     Route: 055
     Dates: start: 20110408, end: 20110412
  21. MOTILIUM [Concomitant]
     Route: 065
  22. DOMPERIDONE [Concomitant]
     Dosage: 30 MILLIGRAM
     Route: 048
     Dates: start: 20110407, end: 20110407
  23. LOVENOX [Concomitant]
     Indication: THROMBOSIS PROPHYLAXIS
     Dosage: .0571 MILLILITER
     Route: 058
     Dates: start: 20100819
  24. ZOMETA [Concomitant]
     Dosage: 5 MILLIGRAM
     Route: 051
     Dates: start: 20110321, end: 20110321

REACTIONS (2)
  - PNEUMONIA [None]
  - RESPIRATORY FAILURE [None]
